FAERS Safety Report 9702132 (Version 4)
Quarter: 2014Q3

REPORT INFORMATION
  Report Type: Spontaneous
  Country: US (occurrence: None)
  Receive Date: 20131119
  Receipt Date: 20140804
  Transmission Date: 20150326
  Serious: Yes (Hospitalization)
  Sender: FDA-Public Use
  Company Number: 2009192

PATIENT
  Age: 57 Year
  Sex: Female
  Weight: 83.46 kg

DRUGS (8)
  1. CELEBREX [Concomitant]
     Active Substance: CELECOXIB
  2. TRAMADOL [Concomitant]
     Active Substance: TRAMADOL
  3. BUPIVACAINE HCL [Suspect]
     Active Substance: BUPIVACAINE HYDROCHLORIDE
     Indication: PAIN
     Dosage: APPROXIMATELY 5 CC
     Route: 050
     Dates: start: 20131029
  4. CELESTONE [Concomitant]
     Active Substance: BETAMETHASONE
  5. ESTROGEN NOS W/METHYLTESTOSTERONE [Concomitant]
  6. OMEPRAZOLE. [Concomitant]
     Active Substance: OMEPRAZOLE
  7. BETADINE [Concomitant]
     Active Substance: POVIDONE-IODINE
  8. EZETIMIBE. [Concomitant]
     Active Substance: EZETIMIBE

REACTIONS (7)
  - Pain [None]
  - Staphylococcal infection [None]
  - Abscess [None]
  - No therapeutic response [None]
  - Myositis [None]
  - Joint swelling [None]
  - Injection site reaction [None]

NARRATIVE: CASE EVENT DATE: 20131101
